FAERS Safety Report 9410527 (Version 1)
Quarter: 2013Q3

REPORT INFORMATION
  Report Type: Spontaneous
  Country: US (occurrence: US)
  Receive Date: 20130719
  Receipt Date: 20130719
  Transmission Date: 20140515
  Serious: Yes (Hospitalization)
  Sender: FDA-Public Use
  Company Number: US-JNJFOC-20130515817

PATIENT
  Age: 77 Year
  Sex: Male
  Weight: 100.7 kg

DRUGS (2)
  1. XARELTO [Suspect]
     Indication: CEREBROVASCULAR ACCIDENT PROPHYLAXIS
     Route: 048
     Dates: start: 20130227, end: 20130512
  2. XARELTO [Suspect]
     Indication: ATRIAL FIBRILLATION
     Route: 048
     Dates: start: 20130227, end: 20130512

REACTIONS (3)
  - Cerebrovascular accident [Recovered/Resolved]
  - Injection site haemorrhage [Recovering/Resolving]
  - Procedural haemorrhage [Recovering/Resolving]
